FAERS Safety Report 6639908-5 (Version None)
Quarter: 2010Q1

REPORT INFORMATION
  Report Type: 
  Country: None (occurrence: None)
  Receive Date: 20100318
  Receipt Date: 20100309
  Transmission Date: 20100710
  Serious: Yes (Hospitalization)
  Sender: FDA-Public Use
  Company Number: JP-NOVOPROD-305429

PATIENT
  Age: 77 Year
  Sex: Female
  Weight: 63 kg

DRUGS (5)
  1. NOVORAPID CHU PENFILL [Suspect]
     Indication: TYPE 2 DIABETES MELLITUS
     Dosage: /SC
     Route: 058
     Dates: start: 20100306
  2. PLETAL [Suspect]
     Dosage: UNK
  3. PLAVIX [Suspect]
     Dosage: UNK
  4. NORVASC [Concomitant]
     Dosage: UNK
  5. MICARDIS [Concomitant]
     Dosage: UNK

REACTIONS (1)
  - NEUTROPHIL COUNT DECREASED [None]
